FAERS Safety Report 6154278-7 (Version None)
Quarter: 2009Q2

REPORT INFORMATION
  Report Type: 
  Country: None (occurrence: None)
  Receive Date: 20090414
  Receipt Date: 20090406
  Transmission Date: 20091009
  Serious: Yes (Death)
  Sender: FDA-Public Use
  Company Number: US-TYCO HEALTHCARE/MALLINCKRODT-T200900820

PATIENT
  Age: 25 Year
  Sex: Female

DRUGS (11)
  1. TEMAZEPAM [Suspect]
  2. ETHANOL [Suspect]
  3. ZYPREXA [Suspect]
  4. DEXTROMETHORPHAN [Suspect]
  5. CITALOPRAM HYDROBROMIDE [Suspect]
  6. AMBIEN [Suspect]
  7. LITHIUM CARBONATE [Concomitant]
  8. RISPERDAL [Concomitant]
  9. LEXAPRO [Concomitant]
  10. NAPROXEN [Concomitant]
  11. METHOCARBAMOL [Concomitant]

REACTIONS (1)
  - POISONING [None]
